FAERS Safety Report 21081136 (Version 1)
Quarter: 2022Q3

REPORT INFORMATION
  Report Type: Spontaneous
  Country: US (occurrence: US)
  Receive Date: 20220714
  Receipt Date: 20220714
  Transmission Date: 20221027
  Serious: No
  Sender: FDA-Public Use
  Company Number: US-SUN PHARMACEUTICAL INDUSTRIES LTD-2021R1-320629

PATIENT
  Age: 70 Year
  Sex: Male

DRUGS (1)
  1. YONSA [Suspect]
     Active Substance: ABIRATERONE ACETATE
     Indication: Product used for unknown indication
     Dosage: UNK (125 MG)
     Route: 065
     Dates: end: 20211120

REACTIONS (1)
  - Therapy cessation [Unknown]

NARRATIVE: CASE EVENT DATE: 20211120
